FAERS Safety Report 13068095 (Version 1)
Quarter: 2016Q4

REPORT INFORMATION
  Report Type: Spontaneous
  Country: US (occurrence: US)
  Receive Date: 20161228
  Receipt Date: 20161228
  Transmission Date: 20170207
  Serious: No
  Sender: FDA-Public Use
  Company Number: PHEH2013US004380

PATIENT
  Sex: Female
  Weight: 68.48 kg

DRUGS (6)
  1. PROTONIX [Concomitant]
     Active Substance: PANTOPRAZOLE SODIUM
     Indication: GASTROOESOPHAGEAL REFLUX DISEASE
     Dosage: 40 MG, UNK
     Route: 048
     Dates: start: 2004
  2. VIVELLE-DOT [Suspect]
     Active Substance: ESTRADIOL
     Indication: HORMONE REPLACEMENT THERAPY
     Dosage: 1 DF, TWICE WEEKLY (0.1)
     Route: 062
     Dates: start: 2002, end: 20130324
  3. SIMVASTATIN. [Concomitant]
     Active Substance: SIMVASTATIN
     Indication: HYPERLIPIDAEMIA
     Dosage: 20 MG, DAILY
     Route: 048
     Dates: start: 20120620
  4. FENTANYL. [Concomitant]
     Active Substance: FENTANYL
     Indication: PAIN
     Dosage: (50 UG/ HR)
     Route: 062
     Dates: start: 2004
  5. TYLENOL WITH CODEINE [Concomitant]
     Active Substance: ACETAMINOPHEN\CODEINE PHOSPHATE
     Indication: PAIN
     Dosage: (1-20 EVERY 4-6 HOURS)
     Route: 048
  6. IBUPROFEN. [Concomitant]
     Active Substance: IBUPROFEN
     Indication: MIGRAINE
     Dosage: 800 MG, TID
     Route: 048
     Dates: start: 2003

REACTIONS (5)
  - Application site erythema [Unknown]
  - Feeling abnormal [Unknown]
  - Application site pain [Unknown]
  - Application site reaction [Recovering/Resolving]
  - Product adhesion issue [Recovering/Resolving]

NARRATIVE: CASE EVENT DATE: 2012
